FAERS Safety Report 7687776-5 (Version None)
Quarter: 2011Q3

REPORT INFORMATION
  Report Type: 
  Country: None (occurrence: None)
  Receive Date: 20110817
  Receipt Date: 20110808
  Transmission Date: 20111222
  Serious: Yes (Hospitalization)
  Sender: FDA-Public Use
  Company Number: CA-US-EMD SERONO, INC.-7034585

PATIENT
  Sex: Female
  Weight: 59 kg

DRUGS (13)
  1. REBIF [Suspect]
     Indication: RELAPSING-REMITTING MULTIPLE SCLEROSIS
     Route: 058
     Dates: start: 20101220
  2. APO-SALVENT [Concomitant]
  3. FLOVENT HFA PUMP [Concomitant]
  4. NASONEX [Concomitant]
  5. APO-RANITIDINE [Concomitant]
  6. PMS-HYDROMORPHONE [Concomitant]
  7. TYLENOL-500 [Concomitant]
  8. LYRICA [Concomitant]
  9. REBIF [Suspect]
     Route: 058
  10. LOPERAMIDE HCL [Concomitant]
  11. PAROXETINE HCL [Concomitant]
  12. CLONAZEPAM [Concomitant]
  13. CESAMET [Concomitant]

REACTIONS (19)
  - HYPOAESTHESIA [None]
  - INJECTION SITE HAEMATOMA [None]
  - INJECTION SITE MASS [None]
  - BRONCHITIS [None]
  - HYPERHIDROSIS [None]
  - WEIGHT DECREASED [None]
  - VOMITING [None]
  - FEELING HOT [None]
  - TINNITUS [None]
  - DIZZINESS [None]
  - VISUAL ACUITY REDUCED [None]
  - BLOOD SODIUM DECREASED [None]
  - INJECTION SITE PAIN [None]
  - NAUSEA [None]
  - INJECTION SITE HAEMORRHAGE [None]
  - INJECTION SITE ERYTHEMA [None]
  - SINUSITIS [None]
  - NASOPHARYNGITIS [None]
  - COUGH [None]
